FAERS Safety Report 24080331 (Version 1)
Quarter: 2024Q3

REPORT INFORMATION
  Report Type: Spontaneous
  Country: AU (occurrence: AU)
  Receive Date: 20240711
  Receipt Date: 20240711
  Transmission Date: 20241017
  Serious: Yes (Other)
  Sender: GLAXOSMITHKLINE
  Company Number: AU-GLAXOSMITHKLINE-AU2024APC085675

PATIENT

DRUGS (1)
  1. JEMPERLI [Suspect]
     Active Substance: DOSTARLIMAB-GXLY
     Indication: Neoplasm malignant
     Dosage: 500 MG, Q3W
     Route: 042

REACTIONS (2)
  - Rectal cancer [Unknown]
  - Off label use [Unknown]
